FAERS Safety Report 5639866-6 (Version None)
Quarter: 2008Q1

REPORT INFORMATION
  Report Type: 
  Country: None (occurrence: None)
  Receive Date: 20080226
  Receipt Date: 20080226
  Transmission Date: 20080703
  Serious: No
  Sender: FDA-Public Use
  Company Number: None

PATIENT
  Sex: Female
  Weight: 83.9154 kg

DRUGS (1)
  1. CHANTIX [Suspect]
     Indication: SMOKING CESSATION THERAPY
     Dosage: 1 MG  BID  PO
     Route: 048
     Dates: start: 20080116, end: 20080219

REACTIONS (3)
  - ANGER [None]
  - FEAR [None]
  - SUICIDAL IDEATION [None]
